FAERS Safety Report 6109488-1 (Version None)
Quarter: 2009Q1

REPORT INFORMATION
  Report Type: 
  Country: None (occurrence: None)
  Receive Date: 20090306
  Receipt Date: 20090306
  Transmission Date: 20090719
  Serious: Yes (Life-Threatening, Hospitalization)
  Sender: FDA-Public Use
  Company Number: None

PATIENT
  Age: 17 Year
  Sex: Female
  Weight: 41.2773 kg

DRUGS (2)
  1. SEROQUEL XR [Suspect]
     Indication: ANOREXIA NERVOSA
     Dosage: 50MG QHS PO
     Route: 048
     Dates: start: 20090227, end: 20090227
  2. SEROQUEL XR [Suspect]
     Indication: DEPRESSION
     Dosage: 50MG QHS PO
     Route: 048
     Dates: start: 20090227, end: 20090227

REACTIONS (1)
  - SUICIDE ATTEMPT [None]
